FAERS Safety Report 8606919-X (Version None)
Quarter: 2012Q3

REPORT INFORMATION
  Report Type: 
  Country: None (occurrence: None)
  Receive Date: 20120820
  Receipt Date: 20120810
  Transmission Date: 20120928
  Serious: Yes (Hospitalization)
  Sender: FDA-Public Use
  Company Number: FR-BAXTER-2012BAX014137

PATIENT
  Sex: Male

DRUGS (23)
  1. MABTHERA [Suspect]
     Route: 042
     Dates: start: 20120521, end: 20120521
  2. DOXORUBICIN HYDROCHLORIDE [Suspect]
     Route: 042
     Dates: start: 20120521, end: 20120521
  3. DOXORUBICIN HYDROCHLORIDE [Suspect]
     Route: 042
     Dates: start: 20120611, end: 20120611
  4. DOXORUBICIN HYDROCHLORIDE [Suspect]
     Route: 042
     Dates: start: 20120723, end: 20120723
  5. ETOPOPHOS PRESERVATIVE FREE [Suspect]
     Route: 042
     Dates: start: 20120611, end: 20120611
  6. ETOPOPHOS PRESERVATIVE FREE [Suspect]
     Route: 042
     Dates: start: 20120702, end: 20120702
  7. CYCLOPHOSPHAMIDE [Suspect]
     Route: 042
     Dates: start: 20120521, end: 20120521
  8. MABTHERA [Suspect]
     Route: 042
     Dates: start: 20120702, end: 20120702
  9. ACETAMINOPHEN [Concomitant]
  10. MABTHERA [Suspect]
     Route: 042
     Dates: start: 20120611, end: 20120611
  11. ETOPOPHOS PRESERVATIVE FREE [Suspect]
     Route: 042
     Dates: start: 20120723, end: 20120723
  12. DOXORUBICIN HYDROCHLORIDE [Suspect]
     Route: 042
     Dates: start: 20120702, end: 20120702
  13. MABTHERA [Suspect]
     Route: 042
     Dates: start: 20120723, end: 20120723
  14. LOVENOX [Concomitant]
  15. CYCLOPHOSPHAMIDE [Suspect]
     Route: 042
     Dates: start: 20120702, end: 20120702
  16. CYCLOPHOSPHAMIDE [Suspect]
     Route: 042
     Dates: start: 20120723, end: 20120723
  17. NEXIUM [Concomitant]
  18. CRESTOR [Concomitant]
  19. CLOPIDOGREL BISULFATE AND ASPIRIN [Concomitant]
  20. VALACYCLOVIR HYDROCHLORIDE [Concomitant]
  21. CYCLOPHOSPHAMIDE [Suspect]
     Route: 042
     Dates: start: 20120611, end: 20120611
  22. ETOPOPHOS PRESERVATIVE FREE [Suspect]
     Route: 042
     Dates: start: 20120521, end: 20120521
  23. ACEBUTOLOL [Concomitant]

REACTIONS (2)
  - INFECTION [None]
  - NEUTROPENIA [None]
